FAERS Safety Report 19465424 (Version 3)
Quarter: 2022Q2

REPORT INFORMATION
  Report Type: Spontaneous
  Country: US (occurrence: US)
  Receive Date: 20210624
  Receipt Date: 20220422
  Transmission Date: 20220721
  Serious: Yes (Death, Life-Threatening, Hospitalization, Congenital Anomaly)
  Sender: FDA-Public Use
  Company Number: US-TEVA-2021-US-1924543

PATIENT
  Sex: Male

DRUGS (3)
  1. FENTANYL [Suspect]
     Active Substance: FENTANYL
     Indication: Product used for unknown indication
     Dosage: ADMINISTERED UPON PRESENTATION TO THE HOSPITAL
     Route: 064
  2. MORPHINE [Suspect]
     Active Substance: MORPHINE
     Indication: Product used for unknown indication
     Dosage: ADMINISTERED UPON PRESENTATION TO THE HOSPITAL
     Route: 064
  3. METHADONE [Suspect]
     Active Substance: METHADONE HYDROCHLORIDE
     Indication: Drug use disorder
     Dosage: THE MOTHER HAD BEEN RECEIVING METHADONE MAINTENANCE THERAPY FOR 2 YEARS.
     Route: 064

REACTIONS (8)
  - Renal vein thrombosis [Fatal]
  - Vena cava thrombosis [Fatal]
  - Foetal vascular malperfusion [Fatal]
  - Neonatal respiratory failure [Fatal]
  - Encephalopathy neonatal [Unknown]
  - Extramedullary haemopoiesis [Unknown]
  - Nucleated red cells [Unknown]
  - Foetal exposure during pregnancy [Unknown]
